FAERS Safety Report 9255485 (Version 2)
Quarter: 2013Q2

REPORT INFORMATION
  Report Type: Report from Study
  Country: FR (occurrence: FR)
  Receive Date: 20130425
  Receipt Date: 20130513
  Transmission Date: 20140414
  Serious: Yes (Hospitalization)
  Sender: FDA-Public Use
  Company Number: PHHO2012FR012957

PATIENT
  Age: 75 Year
  Sex: Male

DRUGS (9)
  1. RAD 666 / RAD 001A [Suspect]
     Indication: RENAL TRANSPLANT
     Dosage: 4 MG, UNK
     Route: 048
     Dates: start: 20120826, end: 20120917
  2. RAD 666 / RAD 001A [Suspect]
     Dosage: 1.5 MG, QD
  3. NEORAL [Suspect]
     Indication: RENAL TRANSPLANT
     Dosage: 250 MG, QD
     Route: 048
     Dates: start: 20121011
  4. METHYLPREDNISOLONE [Suspect]
     Dosage: 15 MG, QD
     Dates: start: 20120829
  5. SOLUPRED [Suspect]
     Indication: RENAL TRANSPLANT
     Dosage: 15 MG, QD
     Route: 048
     Dates: start: 20120829
  6. PREVISCAN [Suspect]
     Indication: DEEP VEIN THROMBOSIS
     Dosage: 20 MG, QD
     Route: 048
     Dates: start: 20120903, end: 20120905
  7. PREVISCAN [Suspect]
     Dosage: 25 MG, QD
     Dates: start: 20120906, end: 20120907
  8. CALCIPARIN [Suspect]
     Indication: DEEP VEIN THROMBOSIS
     Dosage: 0.8 ML, UNK
  9. CELLCEPT [Concomitant]
     Indication: RENAL TRANSPLANT
     Dosage: 1 G, QD
     Route: 048
     Dates: start: 20120823, end: 20120829

REACTIONS (8)
  - Hyperkalaemia [Recovered/Resolved]
  - Necrosis [Recovered/Resolved]
  - Urinary anastomotic leak [Recovered/Resolved]
  - Enterococcal sepsis [Recovered/Resolved]
  - Septic shock [Recovered/Resolved]
  - Urinary tract infection enterococcal [Recovered/Resolved]
  - Deep vein thrombosis [Not Recovered/Not Resolved]
  - Perirenal haematoma [Recovered/Resolved]
